FAERS Safety Report 7887866-8 (Version None)
Quarter: 2011Q4

REPORT INFORMATION
  Report Type: 
  Country: None (occurrence: None)
  Receive Date: 20111103
  Receipt Date: 20111103
  Transmission Date: 20120403
  Serious: Yes (Hospitalization)
  Sender: FDA-Public Use
  Company Number: None

PATIENT
  Age: 73 Year
  Sex: Female
  Weight: 77.11 kg

DRUGS (3)
  1. CYMBALTA [Suspect]
     Indication: DEPRESSION
     Dosage: 30 MG
     Route: 048
  2. TRAMADOL HCL [Concomitant]
     Route: 048
  3. FENTANYL [Concomitant]
     Indication: PAIN
     Dosage: 75 MCG
     Route: 062

REACTIONS (1)
  - SEROTONIN SYNDROME [None]
